FAERS Safety Report 10010294 (Version 1)
Quarter: 2014Q1

REPORT INFORMATION
  Report Type: Spontaneous
  Country: IT (occurrence: IT)
  Receive Date: 20140314
  Receipt Date: 20140314
  Transmission Date: 20141002
  Serious: Yes (Other)
  Sender: FDA-Public Use
  Company Number: PHHY2014IT028204

PATIENT
  Age: 25 Year
  Sex: Male

DRUGS (7)
  1. CISPLATIN [Suspect]
     Indication: CHEMOTHERAPY
     Dosage: 20 MG/M2, ON DAYS 1-5
  2. ETOPOSIDE [Suspect]
     Indication: CHEMOTHERAPY
     Dosage: 100 MG/M2, ON DAYS 1-5
  3. ETOPOSIDE [Suspect]
     Dosage: 1800 MG/M2, ON DAYS 1, 2, 3, AND 4
  4. BLEOMYCIN [Suspect]
     Indication: CHEMOTHERAPY
     Dosage: 30 IU, ON DAYS 2, 9
  5. CARBOPLATIN [Suspect]
  6. CYCLOPHOSPHAMIDE [Suspect]
     Dosage: 6400 MG/M2, ON DAYS 1,2,3 AND 4
  7. GRANULOCYTE-MACROPHAGE COLONY STIMULATING FAC [Concomitant]
     Dosage: 5 UG/KG

REACTIONS (4)
  - Drug-induced liver injury [Recovered/Resolved]
  - Alanine aminotransferase increased [Recovered/Resolved]
  - Aspartate aminotransferase increased [Recovered/Resolved]
  - Alpha 1 foetoprotein increased [Recovered/Resolved]
